FAERS Safety Report 15150558 (Version 1)
Quarter: 2018Q3

REPORT INFORMATION
  Report Type: Spontaneous
  Country: DE (occurrence: DE)
  Receive Date: 20180716
  Receipt Date: 20180716
  Transmission Date: 20181010
  Serious: Yes (Life-Threatening)
  Sender: FDA-Public Use
  Company Number: DE-BAUSCH-BL-2018-019159

PATIENT
  Age: 23 Year
  Sex: Female
  Weight: 59 kg

DRUGS (1)
  1. ZYKLOLAT EDO [Suspect]
     Active Substance: CYCLOPENTOLATE
     Indication: MYDRIASIS
     Route: 065
     Dates: start: 20180629, end: 20180630

REACTIONS (6)
  - Nausea [Recovered/Resolved]
  - Urinary incontinence [Recovered/Resolved]
  - Hot flush [Recovered/Resolved]
  - Syncope [Recovered/Resolved]
  - Malaise [Recovered/Resolved]
  - Dyspnoea [Recovered/Resolved]

NARRATIVE: CASE EVENT DATE: 20180629
